FAERS Safety Report 7981200-0 (Version None)
Quarter: 2011Q4

REPORT INFORMATION
  Report Type: 
  Country: None (occurrence: None)
  Receive Date: 20111212
  Receipt Date: 20111130
  Transmission Date: 20120403
  Serious: Yes (Hospitalization)
  Sender: FDA-Public Use
  Company Number: 1000024331

PATIENT
  Age: 94 Year
  Sex: Female

DRUGS (7)
  1. MEMANTINE HYDROCHLORIDE [Suspect]
     Indication: DEMENTIA ALZHEIMER'S TYPE
     Dosage: 5 MG (5 MG, 1 IN 1 D) ORAL
     Route: 048
     Dates: start: 20110707, end: 20110713
  2. PEON (ZALTOPROFEN) [Concomitant]
  3. ZANTAC [Concomitant]
  4. SISAAL (DEXTROMETHORPHAN HYDROBROMIDE) [Concomitant]
  5. ARIACEPT D (DONEPEZIL HYDROCHLORIDE) [Concomitant]
  6. AMLODIPINE [Concomitant]
  7. ANKISOL (AMBROXOL HYDROCHLORIDE) [Concomitant]

REACTIONS (15)
  - BLOOD ALKALINE PHOSPHATASE INCREASED [None]
  - DECREASED APPETITE [None]
  - ARTHRALGIA [None]
  - RESPIRATORY RATE INCREASED [None]
  - CARDIAC FAILURE ACUTE [None]
  - JOINT SWELLING [None]
  - DEPRESSED LEVEL OF CONSCIOUSNESS [None]
  - SEDATION [None]
  - SOMNOLENCE [None]
  - BLOOD PRESSURE INCREASED [None]
  - ABASIA [None]
  - OXYGEN SATURATION DECREASED [None]
  - HYPOXIA [None]
  - ERYTHEMA [None]
  - PYREXIA [None]
